FAERS Safety Report 4730928-4 (Version None)
Quarter: 2005Q3

REPORT INFORMATION
  Report Type: 
  Country: None (occurrence: None)
  Receive Date: 20050726
  Receipt Date: 20040423
  Transmission Date: 20060218
  Serious: Yes (Death)
  Sender: FDA-Public Use
  Company Number: 04KOR0109

PATIENT
  Sex: Female

DRUGS (6)
  1. AGGRASTAT [Suspect]
     Indication: ACUTE MYOCARDIAL INFARCTION
     Dates: start: 20040212, end: 20040212
  2. AGGRASTAT [Suspect]
     Dosage: INTRACAVERNOUS
     Route: 017
     Dates: start: 20040212, end: 20040212
  3. AMINOPHYLLINE [Concomitant]
  4. ASPIRIN [Concomitant]
  5. CLOPIDOGREL BISULFATE [Concomitant]
  6. DIGOXIN [Concomitant]

REACTIONS (1)
  - VENTRICULAR ARRHYTHMIA [None]
